FAERS Safety Report 9639816 (Version 1)
Quarter: 2013Q4

REPORT INFORMATION
  Report Type: Spontaneous
  Country: US (occurrence: None)
  Receive Date: 20131021
  Receipt Date: 20131021
  Transmission Date: 20140711
  Serious: No
  Sender: FDA-Public Use
  Company Number: None

PATIENT
  Age: 7 Year
  Sex: Male
  Weight: 24.95 kg

DRUGS (2)
  1. ALBUTEROL SULFATE [Suspect]
     Indication: BRONCHITIS
     Dosage: ONE AMPULE
     Route: 055
     Dates: start: 20131005, end: 20131019
  2. ALBUTEROL SULFATE [Suspect]
     Indication: WHEEZING
     Dosage: ONE AMPULE
     Route: 055
     Dates: start: 20131005, end: 20131019

REACTIONS (2)
  - Cough [None]
  - Vomiting [None]
